FAERS Safety Report 13132654 (Version 1)
Quarter: 2017Q1

REPORT INFORMATION
  Report Type: Spontaneous
  Country: US (occurrence: US)
  Receive Date: 20170120
  Receipt Date: 20170120
  Transmission Date: 20170428
  Serious: Yes (Other)
  Sender: FDA-Public Use
  Company Number: US-ACCORD-047537

PATIENT
  Age: 53 Year
  Sex: Male

DRUGS (9)
  1. CALCIPOTRIENE. [Concomitant]
     Active Substance: CALCIPOTRIENE
  2. METHOTREXATE. [Suspect]
     Active Substance: METHOTREXATE
     Indication: PSORIASIS
  3. DULOXETINE. [Concomitant]
     Active Substance: DULOXETINE
     Dosage: DULOXETINE ER
  4. FOLIC ACID. [Concomitant]
     Active Substance: FOLIC ACID
     Indication: SUPPLEMENTATION THERAPY
  5. ALPRAZOLAM. [Concomitant]
     Active Substance: ALPRAZOLAM
     Indication: ANXIETY
  6. DIPHENHYDRAMINE. [Concomitant]
     Active Substance: DIPHENHYDRAMINE
     Indication: SOMNOLENCE
     Dosage: 25 TO 50 MG
  7. BUPROPION/BUPROPION HYDROCHLORIDE [Concomitant]
     Indication: DEPRESSION
  8. DESONIDE/DESONIDE DISODIUM PHOSPHATE [Concomitant]
  9. LEVOMEFOLIC ACID [Interacting]
     Active Substance: LEVOMEFOLIC ACID
     Indication: DEPRESSION

REACTIONS (2)
  - Drug interaction [Unknown]
  - Psoriasis [Recovered/Resolved]
